FAERS Safety Report 4894060-1 (Version None)
Quarter: 2005Q4

REPORT INFORMATION
  Report Type: 
  Country: None (occurrence: None)
  Receive Date: 20051223
  Receipt Date: 20051024
  Transmission Date: 20060501
  Serious: No
  Sender: FDA-Public Use
  Company Number: 2005PV003554

PATIENT
  Age: 47 Year
  Sex: Female

DRUGS (1)
  1. SYMLIN [Suspect]
     Indication: DIABETES MELLITUS INSULIN-DEPENDENT
     Dosage: TID; SC
     Route: 058
     Dates: start: 20051006

REACTIONS (1)
  - WEIGHT DECREASED [None]
